FAERS Safety Report 6739449-0 (Version None)
Quarter: 2010Q2

REPORT INFORMATION
  Report Type: 
  Country: None (occurrence: None)
  Receive Date: 20100525
  Receipt Date: 20100519
  Transmission Date: 20101027
  Serious: Yes (Hospitalization)
  Sender: FDA-Public Use
  Company Number: JP-BAYER-201011182BYL

PATIENT
  Age: 63 Year
  Sex: Male
  Weight: 55 kg

DRUGS (10)
  1. NEXAVAR [Suspect]
     Indication: HEPATIC NEOPLASM MALIGNANT
     Dosage: TOTAL DAILY DOSE: 800 MG  UNIT DOSE: 200 MG
     Route: 048
     Dates: start: 20100301, end: 20100305
  2. NEXAVAR [Suspect]
     Dosage: UNIT DOSE: 200 MG
     Route: 048
     Dates: start: 20100312
  3. OXYCONTIN [Concomitant]
     Indication: ABDOMINAL PAIN UPPER
     Dosage: UNIT DOSE: 5 MG
     Route: 048
  4. PROCHLORPERAZINE [Concomitant]
     Indication: PROPHYLAXIS OF NAUSEA AND VOMITING
     Dosage: UNIT DOSE: 5 MG
     Route: 048
     Dates: end: 20100308
  5. MAGLAX [Concomitant]
     Indication: CONSTIPATION PROPHYLAXIS
     Dosage: UNIT DOSE: 500 MG
     Route: 048
     Dates: start: 20100306, end: 20100309
  6. UFT [Concomitant]
     Dosage: UNIT DOSE: 100 MG
     Route: 048
     Dates: start: 20100129, end: 20100217
  7. IA-CALL [Concomitant]
     Route: 013
     Dates: start: 20100208, end: 20100208
  8. LIPIODOL ULTRA-FLUIDE [Concomitant]
     Route: 013
     Dates: start: 20100208, end: 20100208
  9. OLMESARTAN MEDOXOMIL [Concomitant]
     Indication: HYPERTENSION
     Dosage: UNIT DOSE: 10 MG
     Route: 048
     Dates: start: 20090901
  10. ADALAT CC [Concomitant]
     Indication: HYPERTENSION
     Dosage: UNIT DOSE: 10 MG
     Route: 048
     Dates: start: 20090901

REACTIONS (5)
  - ABDOMINAL PAIN UPPER [None]
  - C-REACTIVE PROTEIN INCREASED [None]
  - DECREASED APPETITE [None]
  - MALAISE [None]
  - PYREXIA [None]
